FAERS Safety Report 8063464-0 (Version None)
Quarter: 2012Q1

REPORT INFORMATION
  Report Type: 
  Country: None (occurrence: None)
  Receive Date: 20120117
  Receipt Date: 20120103
  Transmission Date: 20120608
  Serious: Yes (Death)
  Sender: FDA-Public Use
  Company Number: B0773463A

PATIENT
  Age: 23 Year
  Sex: Male

DRUGS (12)
  1. MUSCLE RELAXANT (FORMULATION UNKNOWN) (GENERIC) (MUSCLE RELEXANT) [Suspect]
     Dosage: ORAL
     Route: 048
  2. CEPHALEXIN [Suspect]
     Dosage: ORAL
     Route: 048
  3. ANIT-HYPERLIPIDEMIC (FORMULATION UNKNOWN) (GENERIC) (ANTI-HYPERLIPIDEM [Suspect]
     Dosage: ORAL
     Route: 048
  4. WARFARIN SODIUM [Suspect]
     Dosage: ORAL
     Route: 048
  5. BENZTROPINE (FORMULATION UNKNOWN) (GENERIC) (BENZTROPINE) [Suspect]
     Dosage: ORAL
     Route: 048
  6. METOPROLOL (FORMULATION UNKNOWN) (GENERIC) (METOPROLOL) [Suspect]
     Dosage: ORAL
     Route: 048
  7. CLINDAMYCIN [Suspect]
     Dosage: ORAL
     Route: 048
  8. IBUPROFEN [Suspect]
     Dosage: ORAL
     Route: 048
  9. FEXOFENADINE HYDROCHLORIDE [Suspect]
     Dosage: ORAL
     Route: 048
  10. BUPROPION HYDROCHLORIDE [Suspect]
     Dosage: ORAL
     Route: 048
  11. VERAPAMIL [Suspect]
     Dosage: ORAL
     Route: 048
  12. HALOPERIDOL [Suspect]
     Dosage: ORAL
     Route: 048

REACTIONS (1)
  - COMPLETED SUICIDE [None]
